FAERS Safety Report 4323768-1 (Version None)
Quarter: 2004Q1

REPORT INFORMATION
  Report Type: 
  Country: None (occurrence: None)
  Receive Date: 20040323
  Receipt Date: 20040312
  Transmission Date: 20041129
  Serious: Yes (Hospitalization)
  Sender: FDA-Public Use
  Company Number: 2004197251DE

PATIENT
  Age: 73 Year
  Sex: Female
  Weight: 70 kg

DRUGS (4)
  1. CABERGOLINE VS LEVODOPA (CODE NOT BROKEN) [Suspect]
     Indication: RESTLESS LEGS SYNDROME
     Dates: start: 20031216, end: 20040119
  2. MARCUMAR [Concomitant]
  3. METOPROLOL [Concomitant]
  4. FUROSEMIDE [Concomitant]

REACTIONS (4)
  - CONDITION AGGRAVATED [None]
  - HYPERTENSION [None]
  - RESTLESS LEGS SYNDROME [None]
  - TACHYCARDIA [None]
